FAERS Safety Report 15454277 (Version 2)
Quarter: 2018Q4

REPORT INFORMATION
  Report Type: Spontaneous
  Country: US (occurrence: US)
  Receive Date: 20181002
  Receipt Date: 20181204
  Transmission Date: 20190204
  Serious: No
  Sender: FDA-Public Use
  Company Number: US-AMGEN-USASP2018135959

PATIENT
  Sex: Female
  Weight: 92 kg

DRUGS (2)
  1. XELJANZ XR [Concomitant]
     Active Substance: TOFACITINIB CITRATE
     Dosage: 11 MG, QD
     Route: 048
  2. ENBREL [Suspect]
     Active Substance: ETANERCEPT
     Indication: RHEUMATOID ARTHRITIS
     Dosage: UNK
     Route: 065
     Dates: start: 201803, end: 201809

REACTIONS (4)
  - Drug intolerance [Unknown]
  - Swelling [Unknown]
  - Abdominal pain [Unknown]
  - Adverse reaction [Unknown]

NARRATIVE: CASE EVENT DATE: 2018
